FAERS Safety Report 16933717 (Version 1)
Quarter: 2019Q4

REPORT INFORMATION
  Report Type: Spontaneous
  Country: US (occurrence: US)
  Receive Date: 20191018
  Receipt Date: 20191018
  Transmission Date: 20200122
  Serious: Yes (Other)
  Sender: FDA-Public Use
  Company Number: US-SA-2019SA289071

PATIENT
  Sex: Female
  Weight: 76.66 kg

DRUGS (3)
  1. ANORO ELLIPTA [Suspect]
     Active Substance: UMECLIDINIUM BROMIDE\VILANTEROL TRIFENATATE
     Indication: PRODUCT USED FOR UNKNOWN INDICATION
     Dosage: UNK UNK, UNK
     Route: 065
  2. PREGABALIN. [Suspect]
     Active Substance: PREGABALIN
     Indication: PRODUCT USED FOR UNKNOWN INDICATION
     Dosage: 50 MG, TWO DAILY
     Route: 065
  3. FLOMAX [Suspect]
     Active Substance: TAMSULOSIN HYDROCHLORIDE
     Indication: PRODUCT USED FOR UNKNOWN INDICATION
     Dosage: UNK UNK, UNK
     Route: 065

REACTIONS (15)
  - Cardiac failure congestive [Unknown]
  - Dyspnoea [Unknown]
  - Weight fluctuation [Unknown]
  - Loss of personal independence in daily activities [Unknown]
  - Blood sodium increased [Unknown]
  - Dry eye [Unknown]
  - Feeling abnormal [Unknown]
  - Mental impairment [Unknown]
  - Visual impairment [Unknown]
  - Condition aggravated [Unknown]
  - Diplopia [Unknown]
  - Eye disorder [Unknown]
  - Reading disorder [Unknown]
  - Gait disturbance [Unknown]
  - Drug intolerance [Unknown]
